FAERS Safety Report 8874205 (Version 1)
Quarter: 2012Q4

REPORT INFORMATION
  Report Type: 
  Country: US (occurrence: US)
  Receive Date: 20121030
  Receipt Date: 20121030
  Transmission Date: 20130627
  Serious: Yes (Other)
  Sender: FDA-Public Use
  Company Number: US-US-EMD SERONO, INC.-7168907

PATIENT
  Sex: Male
  Weight: 108 kg

DRUGS (1)
  1. EGRIFTA [Suspect]
     Indication: LIPODYSTROPHY ACQUIRED
     Dates: start: 201203, end: 201203

REACTIONS (2)
  - Diabetes mellitus [Recovered/Resolved]
  - Hypertension [Recovered/Resolved]
